FAERS Safety Report 8145543-2 (Version None)
Quarter: 2012Q1

REPORT INFORMATION
  Report Type: 
  Country: None (occurrence: None)
  Receive Date: 20120217
  Receipt Date: 20110517
  Transmission Date: 20120608
  Serious: No
  Sender: FDA-Public Use
  Company Number: US-ABBOTT-11P-163-0726323-00

PATIENT
  Sex: Male
  Weight: 70.37 kg

DRUGS (4)
  1. ASPIRIN [Concomitant]
     Indication: PRODUCT USED FOR UNKNOWN INDICATION
     Dosage: 325 MG DAILY
  2. SIMCOR [Suspect]
     Indication: BLOOD CHOLESTEROL INCREASED
     Dosage: STARTING 500/20MG
  3. SIMCOR [Suspect]
     Indication: TYPE IIA HYPERLIPIDAEMIA
     Dosage: 1000/20 MG EVERY MORNING
  4. SYNTHROID [Concomitant]
     Indication: PRODUCT USED FOR UNKNOWN INDICATION
     Dosage: 112 MCG DAILY

REACTIONS (3)
  - SKIN WARM [None]
  - FLUSHING [None]
  - PRURITUS [None]
